FAERS Safety Report 7232494-0 (Version None)
Quarter: 2011Q1

REPORT INFORMATION
  Report Type: 
  Country: None (occurrence: None)
  Receive Date: 20110119
  Receipt Date: 20110110
  Transmission Date: 20110831
  Serious: No
  Sender: FDA-Public Use
  Company Number: TR-JNJFOC-20110104260

PATIENT
  Sex: Female

DRUGS (3)
  1. NEURONTIN [Suspect]
     Indication: PAIN
  2. DURAGESIC-100 [Suspect]
     Indication: PAIN
     Dosage: 50 UG/HR+25 UG/HR
  3. UNKNOWN MEDICATION [Concomitant]

REACTIONS (4)
  - NAUSEA [None]
  - WRONG TECHNIQUE IN DRUG USAGE PROCESS [None]
  - PRODUCT ADHESION ISSUE [None]
  - HYPERHIDROSIS [None]
